FAERS Safety Report 19440123 (Version 4)
Quarter: 2021Q3

REPORT INFORMATION
  Report Type: Report from Study
  Country: None (occurrence: ES)
  Receive Date: 20210620
  Receipt Date: 20210809
  Transmission Date: 20211014
  Serious: Yes (Death, Hospitalization)
  Sender: FDA-Public Use
  Company Number: ES-ABBVIE-21K-144-3955397-00

PATIENT
  Sex: Female

DRUGS (2)
  1. DUODOPA [Suspect]
     Active Substance: CARBIDOPA\LEVODOPA
  2. DUODOPA [Suspect]
     Active Substance: CARBIDOPA\LEVODOPA
     Indication: PARKINSON^S DISEASE
     Route: 050
     Dates: start: 20150219

REACTIONS (9)
  - Medical induction of coma [Fatal]
  - Hypothalamo-pituitary disorder [Unknown]
  - Parkinson^s disease [Unknown]
  - Pyrexia [Fatal]
  - Infection [Recovered/Resolved]
  - Pulmonary embolism [Recovered/Resolved]
  - Neuroleptic malignant syndrome [Fatal]
  - Pneumonia [Fatal]
  - Cerebral disorder [Not Recovered/Not Resolved]

NARRATIVE: CASE EVENT DATE: 2021
